FAERS Safety Report 14733813 (Version 1)
Quarter: 2018Q2

REPORT INFORMATION
  Report Type: Spontaneous
  Country: US (occurrence: US)
  Receive Date: 20180403
  Receipt Date: 20180403
  Transmission Date: 20180711
  Serious: Yes (Disabling, Other)
  Sender: FDA-Public Use
  Company Number: None

PATIENT
  Age: 66 Year
  Sex: Male
  Weight: 96.75 kg

DRUGS (1)
  1. CARVEDILOL EXTENDED RELEASE [Suspect]
     Active Substance: CARVEDILOL
     Indication: ATRIAL FIBRILLATION
     Dosage: ?          QUANTITY:1 CAPSULE(S);?
     Route: 048
     Dates: start: 20180120, end: 20180210

REACTIONS (4)
  - Cardiac disorder [None]
  - Product substitution issue [None]
  - Gait disturbance [None]
  - Insomnia [None]

NARRATIVE: CASE EVENT DATE: 20180120
